FAERS Safety Report 10913141 (Version 3)
Quarter: 2015Q1

REPORT INFORMATION
  Report Type: Spontaneous
  Country: JP (occurrence: JP)
  Receive Date: 20150313
  Receipt Date: 20150324
  Transmission Date: 20150721
  Serious: Yes (Other)
  Sender: FDA-Public Use
  Company Number: JP-MUNDIPHARMA DS AND PHARMACOVIGILANCE-GBR-2015-0026124

PATIENT
  Age: 43 Year
  Sex: Male

DRUGS (9)
  1. NORSPAN [Interacting]
     Active Substance: BUPRENORPHINE
     Indication: FIBROMYALGIA
  2. NORSPAN [Interacting]
     Active Substance: BUPRENORPHINE
     Indication: PAIN
  3. GASTER [Concomitant]
     Active Substance: FAMOTIDINE
     Indication: PRODUCT USED FOR UNKNOWN INDICATION
     Route: 048
  4. LIPITOR [Concomitant]
     Active Substance: ATORVASTATIN CALCIUM
     Route: 048
  5. NORSPAN [Suspect]
     Active Substance: BUPRENORPHINE
     Indication: CERVICOBRACHIAL SYNDROME
     Dosage: 5 MCG, UNK
     Route: 062
     Dates: start: 20150201, end: 20150201
  6. LUVOX [Interacting]
     Active Substance: FLUVOXAMINE MALEATE
     Indication: PRODUCT USED FOR UNKNOWN INDICATION
     Route: 048
  7. MEILAX [Interacting]
     Active Substance: ETHYL LOFLAZEPATE
     Indication: PRODUCT USED FOR UNKNOWN INDICATION
     Route: 048
  8. SOLANAX [Interacting]
     Active Substance: ALPRAZOLAM
     Indication: PRODUCT USED FOR UNKNOWN INDICATION
     Route: 048
  9. LOXONIN [Concomitant]
     Active Substance: LOXOPROFEN SODIUM
     Route: 048

REACTIONS (4)
  - Dizziness [Recovered/Resolved]
  - Dysstasia [Recovered/Resolved]
  - Drug interaction [Recovered/Resolved]
  - Nausea [Unknown]

NARRATIVE: CASE EVENT DATE: 20150201
